FAERS Safety Report 13949641 (Version 1)
Quarter: 2017Q3

REPORT INFORMATION
  Report Type: Spontaneous
  Country: BR (occurrence: BR)
  Receive Date: 20170908
  Receipt Date: 20170908
  Transmission Date: 20171128
  Serious: Yes (Hospitalization, Other)
  Sender: FDA-Public Use
  Company Number: BR-TEVA-803458ROM

PATIENT
  Sex: Female
  Weight: 55 kg

DRUGS (2)
  1. COPAXONE [Suspect]
     Active Substance: GLATIRAMER ACETATE
     Indication: MULTIPLE SCLEROSIS
     Dosage: 20 MILLIGRAM/MILLILITERS DAILY;
  2. COPAXONE [Suspect]
     Active Substance: GLATIRAMER ACETATE
     Dosage: 20 MILLIGRAM/MILLILITERS DAILY;
     Dates: start: 201707

REACTIONS (10)
  - Device related infection [Recovering/Resolving]
  - Kidney infection [Recovering/Resolving]
  - Renal disorder [Recovering/Resolving]
  - Diplopia [Not Recovered/Not Resolved]
  - Multiple sclerosis relapse [Recovering/Resolving]
  - Muscular weakness [Recovering/Resolving]
  - Vision blurred [Recovering/Resolving]
  - Muscle spasms [Recovering/Resolving]
  - Infection [Recovering/Resolving]
  - Weight decreased [Recovering/Resolving]
